FAERS Safety Report 5612488-9 (Version None)
Quarter: 2008Q1

REPORT INFORMATION
  Report Type: 
  Country: None (occurrence: None)
  Receive Date: 20080201
  Receipt Date: 20080201
  Transmission Date: 20080703
  Serious: Yes (Other)
  Sender: FDA-Public Use
  Company Number: None

PATIENT
  Age: 44 Year
  Sex: Female
  Weight: 61.2356 kg

DRUGS (1)
  1. FLOXIN [Suspect]
     Indication: URINARY TRACT INFECTION
     Dosage: 1/2 OF A PILL ONLY ONE TIME
     Dates: start: 20031215, end: 20031215

REACTIONS (10)
  - ABASIA [None]
  - ABDOMINAL PAIN UPPER [None]
  - BURNING SENSATION [None]
  - EYE SWELLING [None]
  - GASTRIC DISORDER [None]
  - MOVEMENT DISORDER [None]
  - MUSCLE TWITCHING [None]
  - PAIN [None]
  - PARAESTHESIA [None]
  - SWELLING [None]
